FAERS Safety Report 5924650-6 (Version None)
Quarter: 2008Q4

REPORT INFORMATION
  Report Type: 
  Country: None (occurrence: None)
  Receive Date: 20081016
  Receipt Date: 20081002
  Transmission Date: 20090506
  Serious: Yes (Hospitalization)
  Sender: FDA-Public Use
  Company Number: 002#1#2008-00696

PATIENT
  Age: 67 Year
  Sex: Male

DRUGS (24)
  1. NEUPRO [Suspect]
     Indication: DRUG USE FOR UNKNOWN INDICATION
     Dosage: 6MG, 1 IN 1 D, TRANSDERMAL
     Route: 062
  2. AMBIEN [Concomitant]
  3. LUNESTA [Concomitant]
  4. OXAZEPAM [Concomitant]
  5. CLONAZEPAM [Concomitant]
  6. OXYPEN [Concomitant]
  7. OXYTRAL [Concomitant]
  8. XALATAN [Concomitant]
  9. DETRAL LA [Concomitant]
  10. REQUIP [Concomitant]
  11. ADVAIR DISKUS 100/50 [Concomitant]
  12. UROXATRAL [Concomitant]
  13. ALBUTEROL [Concomitant]
  14. AYTOXIC [Concomitant]
  15. LIPITOR [Concomitant]
  16. DEPAKOTE [Concomitant]
  17. LISINOPRIL [Concomitant]
  18. ZYRTEC [Concomitant]
  19. SENAKOTE [Concomitant]
  20. MULTI-VITAMIN [Concomitant]
  21. XYPREXA [Concomitant]
  22. RAPINARAL [Concomitant]
  23. SINAMET [Concomitant]
  24. MILATENIR [Concomitant]

REACTIONS (1)
  - OVERDOSE [None]
